FAERS Safety Report 19195190 (Version 1)
Quarter: 2021Q2

REPORT INFORMATION
  Report Type: Spontaneous
  Country: US (occurrence: US)
  Receive Date: 20210429
  Receipt Date: 20210429
  Transmission Date: 20210717
  Serious: Yes (Other)
  Sender: FDA-Public Use
  Company Number: US-AMGEN-USASP2021063023

PATIENT
  Sex: Male

DRUGS (18)
  1. SPIRIVA RESPIMAT [Concomitant]
     Active Substance: TIOTROPIUM BROMIDE
     Dosage: UNK
  2. ALEVE [Concomitant]
     Active Substance: NAPROXEN SODIUM
     Dosage: UNK
  3. HYDROCHLOROTHIAZIDE. [Concomitant]
     Active Substance: HYDROCHLOROTHIAZIDE
     Dosage: UNK
  4. AMOXICILLIN. [Concomitant]
     Active Substance: AMOXICILLIN
     Dosage: 875 MILLIGRAM
  5. EZETIMIBE. [Concomitant]
     Active Substance: EZETIMIBE
     Dosage: UNK
  6. GABAPENTIN. [Concomitant]
     Active Substance: GABAPENTIN
     Dosage: UNK
  7. MELATONIN [Concomitant]
     Active Substance: MELATONIN
     Dosage: UNK
  8. METOPROLOL SUCCINATE. [Concomitant]
     Active Substance: METOPROLOL SUCCINATE
     Dosage: UNK
  9. PLAVIX [Concomitant]
     Active Substance: CLOPIDOGREL BISULFATE
     Dosage: 75 MILLIGRAM
  10. MUCINEX [Concomitant]
     Active Substance: GUAIFENESIN
     Dosage: 1600 MILLIGRAM
  11. ENBREL [Suspect]
     Active Substance: ETANERCEPT
     Indication: BRONCHITIS CHRONIC
     Dosage: 50 MILLIGRAM, QWK
     Route: 058
  12. XANAX [Concomitant]
     Active Substance: ALPRAZOLAM
     Dosage: 2 MILLIGRAM
  13. ASPRIN [Concomitant]
     Active Substance: ASPIRIN
     Dosage: 325 MILLIGRAM
  14. POTASSIUM CHLORIDE. [Concomitant]
     Active Substance: POTASSIUM CHLORIDE
     Dosage: UNK
  15. PEPCID [ALUMINIUM HYDROXIDE GEL, DRIED;MAGNESIUM CARBONATE] [Concomitant]
     Active Substance: ALUMINUM HYDROXIDE\MAGNESIUM CARBONATE
     Dosage: 40 MILLIGRAM
  16. ROSUVASTATIN CALCIUM. [Concomitant]
     Active Substance: ROSUVASTATIN CALCIUM
     Dosage: UNK
  17. MIRTAZAPINE. [Concomitant]
     Active Substance: MIRTAZAPINE
     Dosage: 45 MILLIGRAM
  18. VITAMIN D3 [Concomitant]
     Active Substance: CHOLECALCIFEROL
     Dosage: UNK

REACTIONS (2)
  - Hospice care [Unknown]
  - Off label use [Unknown]
